FAERS Safety Report 24570585 (Version 1)
Quarter: 2024Q4

REPORT INFORMATION
  Report Type: Spontaneous
  Country: US (occurrence: US)
  Receive Date: 20241031
  Receipt Date: 20241031
  Transmission Date: 20250115
  Serious: No
  Sender: ABBVIE
  Company Number: US-ABBVIE-5982666

PATIENT
  Age: 28 Year
  Sex: Male
  Weight: 67 kg

DRUGS (2)
  1. CREON [Suspect]
     Active Substance: PANCRELIPASE AMYLASE\PANCRELIPASE LIPASE\PANCRELIPASE PROTEASE
     Indication: Cystic fibrosis
     Dosage: 2 CAPSULE WITH EACH MEAL AND 1 TO 2 CAPSULE WITH ?EACH SNACK
     Route: 048
     Dates: start: 2006, end: 202410
  2. CREON [Suspect]
     Active Substance: PANCRELIPASE AMYLASE\PANCRELIPASE LIPASE\PANCRELIPASE PROTEASE
     Indication: Cystic fibrosis
     Dosage: 1 CAPSULE PER MEAL AND 1 CAPSULE PER SNACK
     Route: 048
     Dates: start: 202410

REACTIONS (2)
  - Dyspepsia [Recovering/Resolving]
  - Flatulence [Recovering/Resolving]

NARRATIVE: CASE EVENT DATE: 20240901
